FAERS Safety Report 19441067 (Version 1)
Quarter: 2021Q2

REPORT INFORMATION
  Report Type: Spontaneous
  Country: US (occurrence: US)
  Receive Date: 20210621
  Receipt Date: 20210621
  Transmission Date: 20210717
  Serious: Yes (Other)
  Sender: FDA-Public Use
  Company Number: US-TEVA-2021-US-1923231

PATIENT
  Age: 71 Year
  Sex: Female

DRUGS (2)
  1. CHLORDIAZEPOXIDE HYDROCHLORIDE. [Suspect]
     Active Substance: CHLORDIAZEPOXIDE HYDROCHLORIDE
     Dosage: SHE TOOK HERSELF DOWN TO 25 MG ONCE PER DAY
     Route: 065
     Dates: start: 20210604
  2. CHLORDIAZEPOXIDE HYDROCHLORIDE. [Suspect]
     Active Substance: CHLORDIAZEPOXIDE HYDROCHLORIDE
     Route: 065

REACTIONS (10)
  - Withdrawal syndrome [Recovered/Resolved]
  - Seizure [Recovered/Resolved]
  - Feeling abnormal [Unknown]
  - Emergency care [Recovered/Resolved]
  - Migraine [Recovered/Resolved]
  - Dyskinesia [Recovered/Resolved]
  - Dizziness [Recovered/Resolved]
  - Hypertension [Unknown]
  - Dysstasia [Recovered/Resolved]
  - Adverse drug reaction [Unknown]
